FAERS Safety Report 22367654 (Version 1)
Quarter: 2023Q2

REPORT INFORMATION
  Report Type: Spontaneous
  Country: US (occurrence: US)
  Receive Date: 20230525
  Receipt Date: 20230525
  Transmission Date: 20230722
  Serious: Yes (Other)
  Sender: FDA-Public Use
  Company Number: US-UCBSA-2023025949

PATIENT
  Age: 42 Year
  Sex: Female
  Weight: 56.7 kg

DRUGS (8)
  1. MIDAZOLAM [Suspect]
     Active Substance: MIDAZOLAM
     Indication: Sedative therapy
     Dosage: 1 MILLIGRAM
     Route: 042
  2. MIDAZOLAM [Suspect]
     Active Substance: MIDAZOLAM
     Indication: Off label use
  3. MIDAZOLAM [Suspect]
     Active Substance: MIDAZOLAM
     Indication: Anxiety
  4. FENTANYL [Suspect]
     Active Substance: FENTANYL
     Indication: Sedative therapy
     Dosage: 50 MICROGRAM
  5. LIDOCAINE [Suspect]
     Active Substance: LIDOCAINE
     Indication: Anaesthesia
     Dosage: 3 MILLILITER, 1%
  6. LIDOCAINE [Suspect]
     Active Substance: LIDOCAINE
     Dosage: 10 MILLILITER, 2%
  7. LIDOCAINE [Suspect]
     Active Substance: LIDOCAINE
     Dosage: 5 MILLILITER, 2%
  8. LORAZEPAM [Concomitant]
     Active Substance: LORAZEPAM
     Indication: Anxiety
     Dosage: 2 MILLIGRAM

REACTIONS (2)
  - Local anaesthetic systemic toxicity [Recovered/Resolved]
  - Off label use [Unknown]
